FAERS Safety Report 19494806 (Version 3)
Quarter: 2022Q1

REPORT INFORMATION
  Report Type: Report from Study
  Country: US (occurrence: US)
  Receive Date: 20210705
  Receipt Date: 20220128
  Transmission Date: 20220423
  Serious: Yes (Hospitalization, Other)
  Sender: FDA-Public Use
  Company Number: US-TAKEDA-2021TUS041724

PATIENT
  Age: 60 Year
  Sex: Female

DRUGS (12)
  1. TEDUGLUTIDE [Suspect]
     Active Substance: TEDUGLUTIDE
     Indication: Short-bowel syndrome
     Dosage: 3.575 MILLIGRAM, QD
     Route: 058
     Dates: start: 20210222
  2. TEDUGLUTIDE [Suspect]
     Active Substance: TEDUGLUTIDE
     Indication: Short-bowel syndrome
     Dosage: 3.575 MILLIGRAM, QD
     Route: 058
     Dates: start: 20210222
  3. TEDUGLUTIDE [Suspect]
     Active Substance: TEDUGLUTIDE
     Indication: Short-bowel syndrome
     Dosage: 3.575 MILLIGRAM, QD
     Route: 058
     Dates: start: 20210222
  4. TEDUGLUTIDE [Suspect]
     Active Substance: TEDUGLUTIDE
     Indication: Short-bowel syndrome
     Dosage: 3.575 MILLIGRAM, QD
     Route: 058
     Dates: start: 20210222
  5. TEDUGLUTIDE [Suspect]
     Active Substance: TEDUGLUTIDE
     Dosage: 3.575 MILLIGRAM, QD
     Route: 058
     Dates: start: 20210301
  6. TEDUGLUTIDE [Suspect]
     Active Substance: TEDUGLUTIDE
     Dosage: 3.575 MILLIGRAM, QD
     Route: 058
     Dates: start: 20210301
  7. TEDUGLUTIDE [Suspect]
     Active Substance: TEDUGLUTIDE
     Dosage: 3.575 MILLIGRAM, QD
     Route: 058
     Dates: start: 20210301
  8. TEDUGLUTIDE [Suspect]
     Active Substance: TEDUGLUTIDE
     Dosage: 3.575 MILLIGRAM, QD
     Route: 058
     Dates: start: 20210301
  9. TEDUGLUTIDE [Suspect]
     Active Substance: TEDUGLUTIDE
     Dosage: 3.575 MILLIGRAM, QD
     Route: 058
     Dates: start: 202103
  10. TEDUGLUTIDE [Suspect]
     Active Substance: TEDUGLUTIDE
     Dosage: 3.575 MILLIGRAM, QD
     Route: 058
     Dates: start: 202103
  11. TEDUGLUTIDE [Suspect]
     Active Substance: TEDUGLUTIDE
     Dosage: 3.575 MILLIGRAM, QD
     Route: 058
     Dates: start: 202103
  12. TEDUGLUTIDE [Suspect]
     Active Substance: TEDUGLUTIDE
     Dosage: 3.575 MILLIGRAM, QD
     Route: 058
     Dates: start: 202103

REACTIONS (3)
  - Hypoglycaemia [Unknown]
  - Arthritis infective [Unknown]
  - Product dose omission issue [Unknown]

NARRATIVE: CASE EVENT DATE: 20210601
